FAERS Safety Report 14187708 (Version 1)
Quarter: 2017Q4

REPORT INFORMATION
  Report Type: Spontaneous
  Country: US (occurrence: US)
  Receive Date: 20171114
  Receipt Date: 20171114
  Transmission Date: 20180321
  Serious: No
  Sender: FDA-Public Use
  Company Number: US-BAUSCH-BL-2017-026411

PATIENT
  Sex: Female

DRUGS (2)
  1. TRETINOIN CREAM 0.1% [Suspect]
     Active Substance: TRETINOIN
     Indication: ACNE
     Dosage: ONCE, HS
     Route: 061
     Dates: start: 201705
  2. TRETINOIN CREAM 0.1% [Suspect]
     Active Substance: TRETINOIN
     Route: 061
     Dates: start: 2017

REACTIONS (1)
  - Drug ineffective [Not Recovered/Not Resolved]

NARRATIVE: CASE EVENT DATE: 201705
